FAERS Safety Report 7809277-3 (Version None)
Quarter: 2011Q4

REPORT INFORMATION
  Report Type: 
  Country: None (occurrence: None)
  Receive Date: 20111012
  Receipt Date: 20110928
  Transmission Date: 20120403
  Serious: Yes (Other)
  Sender: FDA-Public Use
  Company Number: FR-CELGENEUS-056-21880-11072467

PATIENT
  Sex: Female
  Weight: 71 kg

DRUGS (46)
  1. ARIXTRA [Concomitant]
     Dosage: 7.5 MILLIGRAM
     Route: 058
     Dates: start: 20110608, end: 20110613
  2. KETAMINE HCL [Concomitant]
     Dosage: 70 MILLIGRAM
     Route: 041
     Dates: start: 20110621, end: 20110625
  3. ZARZIO [Concomitant]
     Dosage: 30 MILLIGRAM
     Route: 058
     Dates: start: 20110628, end: 20110705
  4. PHOCYTAN [Concomitant]
     Dosage: MILLIGRAM
     Route: 041
     Dates: start: 20110629, end: 20110707
  5. PIPERACILLIN AND TAZOBACTAM [Concomitant]
     Route: 041
     Dates: start: 20110629, end: 20110712
  6. MEDNUTRIFLEX [Concomitant]
     Route: 041
     Dates: start: 20110718, end: 20110718
  7. VALPROATE SODIUM [Concomitant]
     Indication: EPILEPSY
     Dosage: 250 MILLIGRAM
     Route: 048
     Dates: start: 20110426, end: 20110622
  8. SODIUM BICARBONATE [Concomitant]
     Dosage: MILLIGRAM
     Route: 061
     Dates: start: 20110528, end: 20110528
  9. ARIXTRA [Concomitant]
     Dosage: 7.5 MILLIGRAM
     Route: 058
     Dates: end: 20110629
  10. MORPHINE [Concomitant]
     Dosage: 1MG/ML
     Route: 041
     Dates: start: 20110621, end: 20110705
  11. POTASSIUM [Concomitant]
     Dosage: 2 MILLIGRAM
     Route: 041
     Dates: start: 20110622, end: 20110624
  12. POLYETHYLENE GLYCOL [Concomitant]
     Dosage: 2 DOSAGE FORMS
     Route: 065
     Dates: start: 20110627, end: 20110628
  13. TRAMADOL HCL [Concomitant]
     Indication: PAIN
     Dosage: MILLIGRAM
     Route: 041
     Dates: start: 20110528, end: 20110614
  14. KEPPRA [Concomitant]
     Route: 048
     Dates: start: 20110621, end: 20110623
  15. ROCEPHIN [Concomitant]
     Indication: EPSTEIN-BARR VIRUS INFECTION
     Route: 041
  16. TRANSIPEG [Concomitant]
     Route: 048
     Dates: start: 20110718, end: 20110718
  17. SPECIAFOLDINE [Concomitant]
     Dosage: 5 MILLIGRAM
     Route: 048
     Dates: start: 20110609, end: 20110717
  18. MORPHINE SULFATE [Concomitant]
     Indication: PAIN
     Dosage: MILLIGRAM
     Route: 048
     Dates: start: 20110610, end: 20110614
  19. ACETAMINOPHEN [Concomitant]
     Route: 041
     Dates: start: 20110615, end: 20110621
  20. MIDAZOLAM HCL [Concomitant]
     Dosage: MILLIGRAM
     Route: 041
     Dates: start: 20110720, end: 20110720
  21. DEXAMETHASONE [Concomitant]
     Route: 048
     Dates: start: 20110610, end: 20110622
  22. NEODEX [Concomitant]
     Dosage: 1 TABLET
     Route: 048
     Dates: start: 20110701, end: 20110701
  23. MORPHINE [Concomitant]
     Route: 041
     Dates: start: 20110614, end: 20110620
  24. KEPPRA [Concomitant]
     Route: 041
     Dates: start: 20110623
  25. CIPROFLOXACIN [Concomitant]
     Route: 041
     Dates: start: 20110629, end: 20110712
  26. KETOPROFEN [Concomitant]
     Route: 041
     Dates: start: 20110626, end: 20110627
  27. PROCTOLOG RECTAL [Concomitant]
     Dosage: MILLIGRAM
     Route: 054
     Dates: start: 20110628
  28. REVLIMID [Suspect]
     Dosage: 25 MILLIGRAM
     Route: 048
     Dates: start: 20110610, end: 20110622
  29. GLUCIDION [Concomitant]
     Dosage: MILLIGRAM
     Route: 065
     Dates: start: 20110526, end: 20110617
  30. NEODEX [Concomitant]
     Dosage: 1 TABLET
     Route: 048
     Dates: start: 20110609, end: 20110612
  31. ACETAMINOPHEN [Concomitant]
     Route: 041
     Dates: start: 20110614, end: 20110615
  32. CIPROFLOXACIN [Concomitant]
     Indication: EPSTEIN-BARR VIRUS INFECTION
     Route: 041
     Dates: start: 20110623, end: 20110626
  33. NORMACOL [Concomitant]
     Dosage: MILLIGRAM
     Route: 065
     Dates: start: 20110627, end: 20110627
  34. ACUPAN [Concomitant]
     Dosage: MILLIGRAM
     Route: 041
     Dates: start: 20110720, end: 20110720
  35. MORPHINE [Concomitant]
     Dosage: 1MG/ML
     Route: 041
     Dates: start: 20110707
  36. FRAGMIN [Concomitant]
     Dosage: 5000 IU (INTERNATIONAL UNIT)
     Route: 058
     Dates: start: 20110619, end: 20110622
  37. POTASSIUM CHLORIDE [Concomitant]
     Route: 048
     Dates: start: 20110622, end: 20110624
  38. GENTAMICIN [Concomitant]
     Dosage: MILLIGRAM
     Route: 041
     Dates: start: 20110626, end: 20110626
  39. NEXIUM [Concomitant]
     Dosage: MILLIGRAM
     Route: 041
     Dates: start: 20110626, end: 20110626
  40. NOVASOURCE [Concomitant]
     Route: 065
     Dates: start: 20110713, end: 20110717
  41. LYRICA [Concomitant]
     Dosage: MILLIGRAM
     Route: 048
     Dates: start: 20110505, end: 20110611
  42. METHYLPREDNISOLONE [Concomitant]
     Dosage: 120 MILLIGRAM
     Route: 041
     Dates: start: 20110615, end: 20110615
  43. PIPERACILLIN AND TAZOBACTAM [Concomitant]
     Dosage: MILLIGRAM
     Route: 041
     Dates: start: 20110623, end: 20110626
  44. GELOFUSINE [Concomitant]
     Route: 041
     Dates: start: 20110625, end: 20110625
  45. CLONAZEPAM [Concomitant]
     Dosage: MILLIGRAM
     Route: 048
     Dates: start: 20110717, end: 20110720
  46. LOVENOX [Concomitant]
     Indication: ANGINA PECTORIS
     Route: 058
     Dates: start: 20110622, end: 20110710

REACTIONS (1)
  - T-CELL LYMPHOMA [None]
